FAERS Safety Report 22119507 (Version 1)
Quarter: 2023Q1

REPORT INFORMATION
  Report Type: Spontaneous
  Country: US (occurrence: US)
  Receive Date: 20230321
  Receipt Date: 20230321
  Transmission Date: 20230418
  Serious: No
  Sender: FDA-Public Use
  Company Number: US-GLENMARK PHARMACEUTICALS-2023GMK077687

PATIENT

DRUGS (1)
  1. ETHINYL ESTRADIOL\NORETHINDRONE ACETATE [Suspect]
     Active Substance: ETHINYL ESTRADIOL\NORETHINDRONE ACETATE
     Indication: Contraception
     Dosage: 1 MG/ 20 MCG, OD
     Route: 048

REACTIONS (6)
  - Product dose omission issue [Unknown]
  - Depression [Unknown]
  - Anxiety [Unknown]
  - Polymenorrhoea [Unknown]
  - Intermenstrual bleeding [Unknown]
  - Product quality issue [Unknown]
